FAERS Safety Report 8906713 (Version 2)
Quarter: 2012Q4

REPORT INFORMATION
  Report Type: 
  Country: US (occurrence: US)
  Receive Date: 20121114
  Receipt Date: 20121214
  Transmission Date: 20130627
  Serious: Yes (Disabling)
  Sender: FDA-Public Use
  Company Number: US-PFIZER INC-2012268514

PATIENT
  Sex: Male

DRUGS (4)
  1. LIPITOR [Suspect]
     Dosage: UNK
     Dates: start: 20020914
  2. ACCUPRIL [Suspect]
     Dosage: UNK
     Dates: start: 20020914
  3. DETROL LA [Suspect]
     Dosage: UNK
     Dates: start: 20020914
  4. GLUCOTROL XL [Suspect]
     Dosage: UNK

REACTIONS (1)
  - Abasia [Unknown]
